FAERS Safety Report 4309790-X (Version None)
Quarter: 2004Q1

REPORT INFORMATION
  Report Type: 
  Country: None (occurrence: None)
  Receive Date: 20040301
  Receipt Date: 20040218
  Transmission Date: 20041129
  Serious: Yes (Hospitalization, Disabling, Other)
  Sender: FDA-Public Use
  Company Number: 2003174920DE

PATIENT
  Age: 10 Year
  Sex: Male
  Weight: 26.6 kg

DRUGS (8)
  1. GENOTROPIN [Suspect]
     Indication: RENAL FAILURE CHRONIC
     Dosage: 9.8 MG/WEEK,
     Dates: start: 19971211, end: 20030626
  2. OXYBUTYNIN [Concomitant]
  3. SULFAMETHOXAZOLE + TRIMETHOPRIM [Concomitant]
  4. MULTIVITAMIN [Concomitant]
  5. FERROUS SULFATE TAB [Concomitant]
  6. ROCALTROL [Concomitant]
  7. NIFEDIPINE [Concomitant]
  8. METOPROLOL [Concomitant]

REACTIONS (1)
  - OSTEOCHONDROSIS [None]
